FAERS Safety Report 18280775 (Version 1)
Quarter: 2020Q3

REPORT INFORMATION
  Report Type: Spontaneous
  Country: CA (occurrence: CA)
  Receive Date: 20200917
  Receipt Date: 20200917
  Transmission Date: 20201103
  Serious: Yes (Life-Threatening, Other)
  Sender: FDA-Public Use
  Company Number: CA-ASTRAZENECA-2020SF18157

PATIENT
  Age: 65 Year
  Sex: Female

DRUGS (2)
  1. APO?LETROZOLE [Suspect]
     Active Substance: LETROZOLE
     Indication: OVARIAN CANCER
     Route: 065
  2. OLAPARIB. [Suspect]
     Active Substance: OLAPARIB
     Indication: PRODUCT USED FOR UNKNOWN INDICATION
     Dosage: UNKNOWN
     Route: 048

REACTIONS (3)
  - Neoplasm progression [Unknown]
  - Drug intolerance [Unknown]
  - Ovarian cancer [Unknown]
